FAERS Safety Report 7953468-8 (Version None)
Quarter: 2011Q4

REPORT INFORMATION
  Report Type: 
  Country: None (occurrence: None)
  Receive Date: 20111202
  Receipt Date: 20111129
  Transmission Date: 20120403
  Serious: No
  Sender: FDA-Public Use
  Company Number: US-PFIZER INC-2011212711

PATIENT
  Sex: Male
  Weight: 113.38 kg

DRUGS (3)
  1. FLECTOR [Suspect]
     Indication: TENDON RUPTURE
     Dosage: UNK
     Dates: start: 20110726, end: 20110801
  2. FLECTOR [Suspect]
     Dosage: UNK
  3. FLECTOR [Suspect]

REACTIONS (1)
  - DRUG INEFFECTIVE [None]
